FAERS Safety Report 17139712 (Version 2)
Quarter: 2020Q1

REPORT INFORMATION
  Report Type: Report from Study
  Country: IT (occurrence: IT)
  Receive Date: 20191211
  Receipt Date: 20200327
  Transmission Date: 20200409
  Serious: Yes (Other)
  Sender: FDA-Public Use
  Company Number: IT-ACCORD-164524

PATIENT
  Age: 69 Year
  Sex: Female

DRUGS (1)
  1. GEMCITABINE. [Suspect]
     Active Substance: GEMCITABINE
     Indication: PANCREATIC CARCINOMA METASTATIC
     Dosage: STRENGTH: 100 MG/ML
     Route: 042
     Dates: start: 20190917, end: 20191001

REACTIONS (4)
  - Pneumonia [Recovering/Resolving]
  - Pyrexia [Recovering/Resolving]
  - Interstitial lung disease [Recovering/Resolving]
  - Chills [Recovering/Resolving]

NARRATIVE: CASE EVENT DATE: 20191005
